FAERS Safety Report 6107827-9 (Version None)
Quarter: 2009Q1

REPORT INFORMATION
  Report Type: 
  Country: None (occurrence: None)
  Receive Date: 20090305
  Receipt Date: 20090305
  Transmission Date: 20090719
  Serious: No
  Sender: FDA-Public Use
  Company Number: None

PATIENT
  Age: 65 Year
  Sex: Female

DRUGS (1)
  1. OMNIPAQUE 300 [Suspect]
     Indication: COMPUTERISED TOMOGRAM
     Dates: start: 20090303, end: 20090303

REACTIONS (4)
  - COUGH [None]
  - EYE SWELLING [None]
  - PRURITUS GENERALISED [None]
  - SKIN HYPERTROPHY [None]
